FAERS Safety Report 6993620-1 (Version None)
Quarter: 2010Q3

REPORT INFORMATION
  Report Type: 
  Country: None (occurrence: None)
  Receive Date: 20100917
  Receipt Date: 20080225
  Transmission Date: 20110219
  Serious: Yes (Other)
  Sender: FDA-Public Use
  Company Number: US-ASTRAZENECA-2008UW01515

PATIENT
  Age: 15723 Day
  Sex: Male
  Weight: 96 kg

DRUGS (17)
  1. SEROQUEL [Suspect]
     Indication: DEPRESSION
     Dosage: VARIOUS
     Route: 048
     Dates: start: 19950101, end: 20071001
  2. SEROQUEL [Suspect]
     Route: 048
     Dates: start: 19980210
  3. SEROQUEL [Suspect]
     Dosage: 100 MG MORNING AND 300 MG NIGHT
     Route: 048
     Dates: start: 20050422
  4. ABILIFY [Concomitant]
     Dosage: 100 MG VARIOUS DATES INCLUDING BUT NOT LIMITED TO 2004
  5. CLOZARIL [Concomitant]
  6. HALDOL [Concomitant]
  7. RISPERDAL [Concomitant]
     Route: 048
     Dates: start: 19980707
  8. STELAZINE [Concomitant]
  9. THORAZINE [Concomitant]
  10. ZYPREXA [Concomitant]
     Dates: end: 20010101
  11. DEPAKOTE [Concomitant]
     Dosage: 1000 MG-1500 MG
     Route: 048
     Dates: start: 19980707
  12. DEPAKOTE [Concomitant]
     Dosage: VARIOUS DATES INCLUDING BUT NOT LIMITED TO SEPTEMBER 2005
  13. TRAZODONE HCL [Concomitant]
     Route: 048
     Dates: start: 19980210
  14. PAXIL [Concomitant]
     Route: 048
     Dates: start: 19980210
  15. KLONOPIN [Concomitant]
     Route: 048
     Dates: start: 19980707
  16. BUSPAR [Concomitant]
     Route: 048
     Dates: start: 19980707
  17. GLIPIZIDE [Concomitant]
     Indication: HYPERGLYCAEMIA
     Route: 048
     Dates: start: 19980707

REACTIONS (4)
  - DIABETES MELLITUS [None]
  - DIABETES MELLITUS INADEQUATE CONTROL [None]
  - NERVOUS SYSTEM DISORDER [None]
  - TYPE 2 DIABETES MELLITUS [None]
